FAERS Safety Report 11588213 (Version 1)
Quarter: 2015Q4

REPORT INFORMATION
  Report Type: Spontaneous
  Country: US (occurrence: None)
  Receive Date: 20151001
  Receipt Date: 20151001
  Transmission Date: 20160304
  Serious: Yes (Death)
  Sender: FDA-Public Use
  Company Number: None

PATIENT
  Age: 58 Year
  Sex: Female
  Weight: 97.07 kg

DRUGS (3)
  1. CARBOPLATIN. [Suspect]
     Active Substance: CARBOPLATIN
     Dates: end: 20150925
  2. METFORMIN [Concomitant]
     Active Substance: METFORMIN HYDROCHLORIDE
     Dates: end: 20150925
  3. TAXOL [Concomitant]
     Active Substance: PACLITAXEL
     Dates: end: 20150925

REACTIONS (2)
  - Unresponsive to stimuli [None]
  - Cardio-respiratory arrest [None]

NARRATIVE: CASE EVENT DATE: 20150925
